FAERS Safety Report 14991528 (Version 1)
Quarter: 2018Q2

REPORT INFORMATION
  Report Type: Spontaneous
  Country: US (occurrence: US)
  Receive Date: 20180608
  Receipt Date: 20180608
  Transmission Date: 20180711
  Serious: Yes (Hospitalization, Disabling, Other)
  Sender: FDA-Public Use
  Company Number: US-GLAXOSMITHKLINE-US2018099773

PATIENT
  Sex: Female

DRUGS (8)
  1. IMITREX [Suspect]
     Active Substance: SUMATRIPTAN SUCCINATE
     Indication: HEADACHE
  2. FOLATE [Suspect]
     Active Substance: FOLATE SODIUM
  3. IRON [Suspect]
     Active Substance: IRON
  4. IMITREX [Suspect]
     Active Substance: SUMATRIPTAN SUCCINATE
     Indication: MIGRAINE
     Dosage: UNK
     Dates: start: 1994
  5. IMITREX [Suspect]
     Active Substance: SUMATRIPTAN SUCCINATE
     Indication: MIGRAINE
     Dosage: 20 MG, PRN
  6. IMITREX [Suspect]
     Active Substance: SUMATRIPTAN SUCCINATE
     Indication: HEADACHE
  7. IMITREX [Suspect]
     Active Substance: SUMATRIPTAN SUCCINATE
     Indication: MIGRAINE
     Dosage: 25 MG, PRN
  8. SUMATRIPTAN (SUMATRIPTAN SUCCINATE) [Suspect]
     Active Substance: SUMATRIPTAN SUCCINATE
     Indication: MIGRAINE
     Dosage: 1 PUFF(S), PRN
     Route: 045
     Dates: start: 2003

REACTIONS (29)
  - Palpitations [Recovered/Resolved]
  - Visual impairment [Recovered/Resolved]
  - Asthenia [Unknown]
  - Fatigue [Recovering/Resolving]
  - Blood copper decreased [Recovering/Resolving]
  - Migraine [Unknown]
  - Red blood cell count decreased [Recovering/Resolving]
  - Blood iron decreased [Recovering/Resolving]
  - Diarrhoea [Recovered/Resolved]
  - White blood cell count decreased [Unknown]
  - Disability [Not Recovered/Not Resolved]
  - Adverse reaction [Unknown]
  - Wrong technique in device usage process [Unknown]
  - Anaemia [Recovering/Resolving]
  - Somnolence [Recovered/Resolved]
  - Blood pressure increased [Not Recovered/Not Resolved]
  - Wrong technique in product usage process [Recovered/Resolved]
  - Drug ineffective [Recovered/Resolved]
  - Drug intolerance [Unknown]
  - Platelet count decreased [Recovering/Resolving]
  - Grip strength decreased [Recovered/Resolved]
  - Vomiting [Recovered/Resolved]
  - Constipation [Recovering/Resolving]
  - Underdose [Unknown]
  - Tooth discolouration [Unknown]
  - Pancytopenia [Recovering/Resolving]
  - Cerebrovascular accident [Recovered/Resolved]
  - Mitral valve prolapse [Not Recovered/Not Resolved]
  - Ill-defined disorder [Unknown]
